FAERS Safety Report 9171698 (Version 5)
Quarter: 2014Q1

REPORT INFORMATION
  Report Type: Spontaneous
  Country: US (occurrence: US)
  Receive Date: 20130319
  Receipt Date: 20140306
  Transmission Date: 20141002
  Serious: Yes (Hospitalization, Disabling, Other)
  Sender: FDA-Public Use
  Company Number: US-009507513-1303USA007554

PATIENT
  Sex: Female
  Weight: 102.95 kg

DRUGS (4)
  1. FOSAMAX [Suspect]
     Indication: OSTEOPOROSIS
     Dosage: 70 MG, QW
     Route: 048
     Dates: start: 2000
  2. FOSAMAX [Suspect]
     Indication: OSTEOPENIA
  3. JANUVIA [Concomitant]
     Indication: DIABETES MELLITUS
     Dosage: UNK
     Route: 048
  4. CALCIUM (UNSPECIFIED) [Concomitant]
     Indication: OSTEOPENIA
     Dosage: UNK, QD

REACTIONS (34)
  - Femur fracture [Unknown]
  - Knee arthroplasty [Not Recovered/Not Resolved]
  - Thyroid operation [Unknown]
  - Intramedullary rod insertion [Unknown]
  - Colectomy [Unknown]
  - Femur fracture [Unknown]
  - Removal of internal fixation [Unknown]
  - Intramedullary rod insertion [Unknown]
  - Intramedullary rod insertion [Unknown]
  - Surgery [Unknown]
  - Knee arthroplasty [Unknown]
  - Device failure [Unknown]
  - Bone graft [Unknown]
  - Inflammatory bowel disease [Unknown]
  - Low turnover osteopathy [Unknown]
  - Cardiomegaly [Unknown]
  - Aortic disorder [Unknown]
  - Aspiration joint [Unknown]
  - Fracture nonunion [Not Recovered/Not Resolved]
  - Device failure [Unknown]
  - Arthritis [Unknown]
  - Hyperthyroidism [Unknown]
  - Hysterectomy [Unknown]
  - Oophorectomy [Unknown]
  - Joint effusion [Unknown]
  - Pain [Not Recovered/Not Resolved]
  - Bursitis [Unknown]
  - Soft tissue disorder [Unknown]
  - Local swelling [Unknown]
  - Arthropathy [Unknown]
  - Pain in extremity [Unknown]
  - Gastrooesophageal reflux disease [Unknown]
  - Drug ineffective [Unknown]
  - Nausea [Unknown]
